FAERS Safety Report 6088675-5 (Version None)
Quarter: 2009Q1

REPORT INFORMATION
  Report Type: 
  Country: None (occurrence: None)
  Receive Date: 20090219
  Receipt Date: 20090210
  Transmission Date: 20090719
  Serious: Yes (Life-Threatening, Hospitalization, Other)
  Sender: FDA-Public Use
  Company Number: GXKR2009DE00719

PATIENT
  Sex: Male
  Weight: 92 kg

DRUGS (4)
  1. CAPTOPRIL AND HYDROCHLOROTHIAZIDE [Suspect]
     Indication: HYPERTENSION
     Dosage: 1 DF (25 MG/12.5 MG), QD, ORAL
     Route: 048
     Dates: start: 20080919, end: 20081007
  2. METFORMIN HCL [Suspect]
     Indication: TYPE 2 DIABETES MELLITUS
     Dosage: 850 MG, QD, ORAL
     Route: 048
     Dates: start: 20080929, end: 20081009
  3. IBUPROFEN STADA (IBUPROFEN) [Concomitant]
  4. TRAMADOL HYDROHLORIDE [Concomitant]

REACTIONS (4)
  - BLOOD CREATININE INCREASED [None]
  - BLOOD LACTATE DEHYDROGENASE INCREASED [None]
  - HAEMOLYTIC ANAEMIA [None]
  - THROMBOTIC THROMBOCYTOPENIC PURPURA [None]
